FAERS Safety Report 17816117 (Version 4)
Quarter: 2020Q3

REPORT INFORMATION
  Report Type: Spontaneous
  Country: US (occurrence: US)
  Receive Date: 20200522
  Receipt Date: 20200922
  Transmission Date: 20201102
  Serious: Yes (Other)
  Sender: FDA-Public Use
  Company Number: US-GLAXOSMITHKLINE-US2020AMR084008

PATIENT
  Age: 55 Year
  Sex: Female

DRUGS (1)
  1. ZEJULA [Suspect]
     Active Substance: NIRAPARIB
     Indication: ENDOMETRIAL CANCER
     Dosage: 100 MG, DAILY
     Dates: start: 20190110

REACTIONS (7)
  - Memory impairment [Unknown]
  - Balance disorder [Unknown]
  - Vaginal haemorrhage [Not Recovered/Not Resolved]
  - Hallucination, auditory [Unknown]
  - Rectal haemorrhage [Not Recovered/Not Resolved]
  - Underdose [Unknown]
  - Product use in unapproved indication [Unknown]

NARRATIVE: CASE EVENT DATE: 20200817
